FAERS Safety Report 5657022-2 (Version None)
Quarter: 2008Q1

REPORT INFORMATION
  Report Type: 
  Country: None (occurrence: None)
  Receive Date: 20080310
  Receipt Date: 20080303
  Transmission Date: 20080703
  Serious: Yes (Hospitalization)
  Sender: FDA-Public Use
  Company Number: CA-ASTRAZENECA-2008UW04435

PATIENT
  Sex: Male

DRUGS (4)
  1. LOSEC I.V. [Suspect]
     Indication: DYSPEPSIA
     Route: 048
     Dates: start: 19880101
  2. DIOVAN [Concomitant]
     Indication: HYPERTENSION
  3. HYDROCHLOROTHIAZIDE [Concomitant]
     Indication: HYPERTENSION
  4. ASPIRIN [Concomitant]
     Indication: ANTICOAGULANT THERAPY

REACTIONS (2)
  - APPENDICITIS PERFORATED [None]
  - DRUG INEFFECTIVE [None]
